FAERS Safety Report 4581545-0 (Version None)
Quarter: 2005Q1

REPORT INFORMATION
  Report Type: 
  Country: None (occurrence: None)
  Receive Date: 20050214
  Receipt Date: 20041115
  Transmission Date: 20050727
  Serious: No
  Sender: FDA-Public Use
  Company Number: US-GLAXOSMITHKLINE-A0533958A

PATIENT
  Age: 20 Year
  Sex: Female

DRUGS (3)
  1. LAMICTAL [Suspect]
     Indication: DEPRESSION
     Dosage: 12.5MG TWICE PER DAY
     Route: 048
     Dates: start: 20041001
  2. LEXAPRO [Concomitant]
     Dosage: 5MG IN THE MORNING
     Route: 048
     Dates: start: 20040901
  3. KLONOPIN [Concomitant]
     Dosage: .25MG TWICE PER DAY
     Route: 048
     Dates: start: 20040901

REACTIONS (5)
  - COORDINATION ABNORMAL [None]
  - DISTURBANCE IN ATTENTION [None]
  - HEADACHE [None]
  - READING DISORDER [None]
  - SPEECH DISORDER [None]
